FAERS Safety Report 16728792 (Version 1)
Quarter: 2019Q3

REPORT INFORMATION
  Report Type: Spontaneous
  Country: FR (occurrence: FR)
  Receive Date: 20190822
  Receipt Date: 20190822
  Transmission Date: 20191005
  Serious: Yes (Other)
  Sender: FDA-Public Use
  Company Number: FR-ACCORD-152449

PATIENT
  Age: 24 Year
  Sex: Male

DRUGS (4)
  1. NAVELBIN [Suspect]
     Active Substance: VINORELBINE TARTRATE
     Indication: HODGKIN^S DISEASE
     Dosage: UNSPECIFIED
     Route: 042
     Dates: start: 20190718, end: 20190718
  2. GEMCITABINE/GEMCITABINE HYDROCHLORIDE [Suspect]
     Active Substance: GEMCITABINE\GEMCITABINE HYDROCHLORIDE
     Indication: HODGKIN^S DISEASE
     Dosage: UNSPECIFIED
     Route: 042
     Dates: start: 20190718, end: 20190718
  3. NAVELBIN [Suspect]
     Active Substance: VINORELBINE TARTRATE
     Indication: HODGKIN^S DISEASE
     Dosage: UNSPECIFIED
     Route: 042
     Dates: start: 20190627, end: 20190718
  4. GEMCITABINE/GEMCITABINE HYDROCHLORIDE [Suspect]
     Active Substance: GEMCITABINE\GEMCITABINE HYDROCHLORIDE
     Indication: HODGKIN^S DISEASE
     Dosage: UNSPECIFIED
     Route: 042
     Dates: start: 20190627, end: 20190718

REACTIONS (4)
  - Rash maculo-papular [Recovered/Resolved]
  - Hepatocellular injury [Recovering/Resolving]
  - Hypertransaminasaemia [Recovering/Resolving]
  - Off label use [Unknown]

NARRATIVE: CASE EVENT DATE: 20190708
